FAERS Safety Report 4571427-2 (Version None)
Quarter: 2005Q1

REPORT INFORMATION
  Report Type: 
  Country: None (occurrence: None)
  Receive Date: 20050203
  Receipt Date: 20050203
  Transmission Date: 20050727
  Serious: No
  Sender: FDA-Public Use
  Company Number: None

PATIENT
  Sex: Female

DRUGS (2)
  1. ZESTRIL [Suspect]
     Indication: HYPERLIPIDAEMIA
     Dosage: 10 MG 1 TABLET DAILY BY MOUTH
  2. ZESTRIL [Suspect]
     Indication: HYPERTENSION
     Dosage: 10 MG 1 TABLET DAILY BY MOUTH

REACTIONS (2)
  - GASTROINTESTINAL DISORDER [None]
  - PHARMACEUTICAL PRODUCT COMPLAINT [None]
